FAERS Safety Report 11582883 (Version 2)
Quarter: 2015Q4

REPORT INFORMATION
  Report Type: Other
  Country: CA (occurrence: CA)
  Receive Date: 20151001
  Receipt Date: 20151014
  Transmission Date: 20160304
  Serious: Yes (Other)
  Sender: FDA-Public Use
  Company Number: CA-TARO PHARMACEUTICALS USA.,INC-2015SUN02036

PATIENT
  Age: 4 Year
  Sex: Male
  Weight: 17.5 kg

DRUGS (1)
  1. TARO-CARBAMAZEPINE ORAL SUSPENSION 100 MG/5 ML [Suspect]
     Active Substance: CARBAMAZEPINE
     Indication: SEIZURE
     Dosage: 6 ML, BID
     Route: 048
     Dates: start: 201504, end: 20150920

REACTIONS (3)
  - Drug ineffective [Recovered/Resolved]
  - Product quality issue [Recovered/Resolved]
  - Seizure [Unknown]

NARRATIVE: CASE EVENT DATE: 201505
